FAERS Safety Report 24988742 (Version 3)
Quarter: 2025Q2

REPORT INFORMATION
  Report Type: Spontaneous
  Country: JP (occurrence: JP)
  Receive Date: 20250220
  Receipt Date: 20250613
  Transmission Date: 20250717
  Serious: No
  Sender: ASTELLAS
  Company Number: JP-ASTELLAS-2025-AER-009401

PATIENT
  Age: 9 Decade
  Sex: Female

DRUGS (1)
  1. MIRABEGRON [Suspect]
     Active Substance: MIRABEGRON
     Indication: Product used for unknown indication
     Route: 048

REACTIONS (1)
  - Supraventricular extrasystoles [Unknown]
